FAERS Safety Report 6037342-2 (Version None)
Quarter: 2009Q1

REPORT INFORMATION
  Report Type: 
  Country: None (occurrence: None)
  Receive Date: 20090114
  Receipt Date: 20090106
  Transmission Date: 20090719
  Serious: Yes (Death, Hospitalization, Other)
  Sender: FDA-Public Use
  Company Number: PHEH2005US07148

PATIENT

DRUGS (15)
  1. AREDIA [Suspect]
     Dosage: 30 MG, UNK
     Dates: end: 20040101
  2. ZOMETA [Suspect]
     Indication: BREAST CANCER METASTATIC
     Dosage: 4 MG EVERY 3 WEEKS
     Dates: start: 20040101, end: 20050623
  3. XELODA [Concomitant]
     Dosage: 3500 MG, UNK
     Route: 048
     Dates: end: 20050301
  4. GEMZAR [Concomitant]
     Dosage: 1700MG QWK
     Dates: start: 20050301
  5. ZOLADEX [Concomitant]
     Indication: BREAST CANCER
     Dosage: 3.6 / QMOS
     Route: 058
     Dates: start: 20050301
  6. DECADRON #1 [Concomitant]
     Dosage: 5 MG, UNK
  7. SYNTHROID [Concomitant]
  8. EPOGEN [Concomitant]
  9. ADVIL LIQUI-GELS [Concomitant]
  10. ALOXI [Concomitant]
     Dosage: 0.25 MG, UNK
  11. LEXAPRO [Concomitant]
     Dosage: 10 MG, UNK
  12. NEXIUM [Concomitant]
     Dosage: 20 MG, UNK
  13. TAXOL [Concomitant]
     Dosage: UNK
     Dates: start: 20010101
  14. TAXOL [Concomitant]
     Dosage: UNK
     Dates: start: 20040101
  15. FASLODEX [Concomitant]

REACTIONS (33)
  - ANAEMIA [None]
  - ANXIETY [None]
  - BONE DEBRIDEMENT [None]
  - BONE DISORDER [None]
  - BONE FORMATION INCREASED [None]
  - BONE NEOPLASM MALIGNANT [None]
  - BONE PAIN [None]
  - BONE TRIMMING [None]
  - BREAST CANCER METASTATIC [None]
  - DECREASED INTEREST [None]
  - DEEP VEIN THROMBOSIS [None]
  - DEFORMITY [None]
  - EAR PAIN [None]
  - EMOTIONAL DISTRESS [None]
  - GENERAL PHYSICAL HEALTH DETERIORATION [None]
  - GINGIVAL PAIN [None]
  - HEADACHE [None]
  - HYPOAESTHESIA ORAL [None]
  - IMPAIRED HEALING [None]
  - INFECTION [None]
  - LIFE EXPECTANCY SHORTENED [None]
  - MALIGNANT NEOPLASM PROGRESSION [None]
  - MOUTH ULCERATION [None]
  - OSTEOLYSIS [None]
  - OSTEONECROSIS [None]
  - PAIN [None]
  - PAIN IN EXTREMITY [None]
  - PALMAR-PLANTAR ERYTHRODYSAESTHESIA SYNDROME [None]
  - SWELLING [None]
  - TEMPOROMANDIBULAR JOINT SYNDROME [None]
  - THROMBOTIC THROMBOCYTOPENIC PURPURA [None]
  - TOOTH EXTRACTION [None]
  - WISDOM TEETH REMOVAL [None]
